FAERS Safety Report 5364308-8 (Version None)
Quarter: 2007Q2

REPORT INFORMATION
  Report Type: 
  Country: None (occurrence: None)
  Receive Date: 20070620
  Receipt Date: 20070614
  Transmission Date: 20071010
  Serious: Yes (Hospitalization, Other)
  Sender: FDA-Public Use
  Company Number: JP-ABBOTT-07P-087-0370870-00

PATIENT
  Age: 41 Year
  Sex: Male

DRUGS (6)
  1. CLARITHROMYCIN [Suspect]
     Indication: HELICOBACTER INFECTION
     Route: 048
     Dates: start: 20020826, end: 20020902
  2. LANSOPRAZOLE [Suspect]
     Indication: GASTRIC ULCER
     Route: 048
     Dates: start: 20020826, end: 20020902
  3. LANSOPRAZOLE [Suspect]
     Indication: HELICOBACTER INFECTION
     Route: 048
     Dates: start: 20020701, end: 20020819
  4. AMOXICILLIN HYDRATE [Suspect]
     Indication: HELICOBACTER INFECTION
     Route: 048
     Dates: start: 20020826, end: 20020902
  5. ETIZOLAM [Concomitant]
     Indication: VERTEBROBASILAR INSUFFICIENCY
     Route: 048
     Dates: start: 19971130
  6. IFENPRODIL TARTRATE [Concomitant]
     Indication: VERTEBROBASILAR INSUFFICIENCY
     Route: 048
     Dates: start: 19971130

REACTIONS (7)
  - ABDOMINAL PAIN [None]
  - DIARRHOEA [None]
  - ENTEROCOLITIS HAEMORRHAGIC [None]
  - ERYTHEMA [None]
  - GASTRIC ULCER HAEMORRHAGE [None]
  - HAEMATOCHEZIA [None]
  - OEDEMA MUCOSAL [None]
